FAERS Safety Report 7994172-X (Version None)
Quarter: 2011Q4

REPORT INFORMATION
  Report Type: 
  Country: None (occurrence: None)
  Receive Date: 20111123
  Receipt Date: 20110808
  Transmission Date: 20120403
  Serious: No
  Sender: FDA-Public Use
  Company Number: 337843

PATIENT
  Age: 60 Year
  Sex: Male

DRUGS (1)
  1. VICTOZA [Suspect]
     Indication: PRODUCT USED FOR UNKNOWN INDICATION
     Dosage: 0.6 MG, QD, SUBCUTANEOUS; 1.2 MG, QD, SUBCUTANEOUS
     Route: 058
     Dates: start: 20110603

REACTIONS (6)
  - FLATULENCE [None]
  - DISCOMFORT [None]
  - DECREASED APPETITE [None]
  - HEART RATE INCREASED [None]
  - DYSPEPSIA [None]
  - ERUCTATION [None]
